FAERS Safety Report 10467245 (Version 2)
Quarter: 2014Q3

REPORT INFORMATION
  Report Type: Report from Study
  Country: US (occurrence: US)
  Receive Date: 20140922
  Receipt Date: 20140929
  Transmission Date: 20150326
  Serious: Yes (Death, Hospitalization, Other)
  Sender: FDA-Public Use
  Company Number: PHEH2014US018149

PATIENT
  Sex: Male
  Weight: 194 kg

DRUGS (8)
  1. HIDROXIUREA [Concomitant]
     Active Substance: HYDROXYUREA
     Dosage: UNK UKN, UNK
  2. PITRESSIN [Concomitant]
     Active Substance: VASOPRESSIN
     Dosage: 0.03 UKN, UNK
     Route: 041
     Dates: start: 20140908
  3. GLEEVEC [Suspect]
     Active Substance: IMATINIB MESYLATE
     Indication: CHRONIC MYELOID LEUKAEMIA
     Dosage: UNK UKN, UNK
     Route: 048
  4. NEOSYNEPHRINE [Concomitant]
     Active Substance: PHENYLEPHRINE HYDROCHLORIDE
     Dosage: UNK UKN, UNK
     Route: 041
     Dates: start: 20140908
  5. PROTONIX [Concomitant]
     Active Substance: PANTOPRAZOLE SODIUM
     Dosage: 8 UKN, UNK
     Route: 041
  6. ALLOPURINOL. [Concomitant]
     Active Substance: ALLOPURINOL
     Dosage: UNK UKN, UNK
  7. SODIUM BICARBONATE. [Concomitant]
     Active Substance: SODIUM BICARBONATE
     Dosage: 150 MEQ, UNK
     Route: 041
     Dates: start: 20140908
  8. LEVOPHED [Concomitant]
     Active Substance: NOREPINEPHRINE BITARTRATE
     Dosage: 160 UKN, UNK
     Route: 041
     Dates: start: 20140908

REACTIONS (16)
  - Hypovolaemic shock [Fatal]
  - Haemoglobin decreased [Unknown]
  - Haemorrhage [Unknown]
  - Depressed level of consciousness [Unknown]
  - Gastrointestinal necrosis [Unknown]
  - White blood cell count decreased [Unknown]
  - Mental status changes [Unknown]
  - Hypotension [Unknown]
  - Haematemesis [Unknown]
  - Abdominal mass [Unknown]
  - Urine output decreased [Unknown]
  - Tachycardia [Unknown]
  - Infarction [Unknown]
  - Cerebral haemorrhage [Unknown]
  - Cardiac arrest [Unknown]
  - Respiratory rate increased [Unknown]
